FAERS Safety Report 5969062-4 (Version None)
Quarter: 2008Q4

REPORT INFORMATION
  Report Type: 
  Country: None (occurrence: None)
  Receive Date: 20081125
  Receipt Date: 20081125
  Transmission Date: 20090506
  Serious: No
  Sender: FDA-Public Use
  Company Number: None

PATIENT
  Age: 6 Year
  Sex: Male
  Weight: 23.587 kg

DRUGS (2)
  1. ADVATE [Suspect]
     Indication: HAEMARTHROSIS
     Dosage: 1038 IU AS ORDERED IV
     Route: 042
     Dates: start: 20081120, end: 20081120
  2. ADVATE [Suspect]
     Indication: HAEMOPHILIA
     Dosage: 1038 IU AS ORDERED IV
     Route: 042
     Dates: start: 20081120, end: 20081120

REACTIONS (2)
  - DEVICE MALFUNCTION [None]
  - PRODUCT QUALITY ISSUE [None]
